FAERS Safety Report 19960660 (Version 1)
Quarter: 2021Q4

REPORT INFORMATION
  Report Type: Spontaneous
  Country: DE (occurrence: DE)
  Receive Date: 20211016
  Receipt Date: 20211016
  Transmission Date: 20220303
  Serious: Yes (Hospitalization, Other)
  Sender: FDA-Public Use
  Company Number: None

PATIENT
  Age: 30 Year
  Sex: Male

DRUGS (5)
  1. QUETIAPINE [Suspect]
     Active Substance: QUETIAPINE
     Indication: Schizophrenia
     Dosage: UP TO A MAXIMUM OF 700 MG PER DAY
     Route: 048
  2. VENLAFAXINE [Suspect]
     Active Substance: VENLAFAXINE HYDROCHLORIDE
     Indication: Apathy
     Dosage: IN CHANGING DOSES: MAX. 300 MG DAILY
     Route: 048
  3. CLOMIPRAMINE [Concomitant]
     Active Substance: CLOMIPRAMINE
     Indication: Product used for unknown indication
     Dosage: 150 MG/DAY
     Route: 065
  4. VALPROIC ACID [Concomitant]
     Active Substance: VALPROIC ACID
     Indication: Schizophrenia
     Dosage: INITIATED AT AGE 33
  5. QUETIAPINE [Concomitant]
     Active Substance: QUETIAPINE
     Indication: Product used for unknown indication
     Dosage: UP TO A MAXIMUM OF 700 MG PER DAY

REACTIONS (19)
  - Intentional product misuse [Unknown]
  - Euphoric mood [Recovered/Resolved]
  - Mania [Recovered/Resolved]
  - Logorrhoea [Unknown]
  - Delusion of grandeur [Unknown]
  - Psychomotor hyperactivity [Recovering/Resolving]
  - Abnormal behaviour [Unknown]
  - Impulsive behaviour [Unknown]
  - Prescribed overdose [Unknown]
  - Drug dependence [Unknown]
  - Disturbance in attention [Unknown]
  - Off label use [Unknown]
  - Treatment noncompliance [Unknown]
  - Dissociation [Unknown]
  - Dysphoria [Unknown]
  - Tachyphrenia [Unknown]
  - Drug abuse [Unknown]
  - Drug withdrawal syndrome [Recovered/Resolved]
  - Agitation [Recovered/Resolved]
